FAERS Safety Report 6685138-0 (Version None)
Quarter: 2010Q2

REPORT INFORMATION
  Report Type: 
  Country: None (occurrence: None)
  Receive Date: 20100416
  Receipt Date: 20100413
  Transmission Date: 20101027
  Serious: Yes (Other)
  Sender: FDA-Public Use
  Company Number: US-PFIZER INC-2010047188

PATIENT
  Sex: Male

DRUGS (2)
  1. TOVIAZ [Suspect]
  2. ACETYLSALICYLIC ACID [Concomitant]

REACTIONS (1)
  - ACUTE MYOCARDIAL INFARCTION [None]
